FAERS Safety Report 12442688 (Version 1)
Quarter: 2016Q2

REPORT INFORMATION
  Report Type: Spontaneous
  Country: US (occurrence: None)
  Receive Date: 20160606
  Receipt Date: 20160606
  Transmission Date: 20160815
  Serious: Yes (Other)
  Sender: FDA-Public Use
  Company Number: None

PATIENT
  Age: 42 Year
  Sex: Female

DRUGS (3)
  1. IBUPROFEN. [Concomitant]
     Active Substance: IBUPROFEN
  2. NUVARING [Suspect]
     Active Substance: ETHINYL ESTRADIOL\ETONOGESTREL
  3. DAILY MULTI-VITAMIN [Concomitant]
     Active Substance: VITAMINS

REACTIONS (7)
  - Vulvovaginal pruritus [None]
  - Vaginal discharge [None]
  - Abdominal pain upper [None]
  - Affective disorder [None]
  - Depression [None]
  - Vulvovaginal burning sensation [None]
  - Nausea [None]

NARRATIVE: CASE EVENT DATE: 20160604
